FAERS Safety Report 6903073-7 (Version None)
Quarter: 2010Q3

REPORT INFORMATION
  Report Type: 
  Country: None (occurrence: None)
  Receive Date: 20100803
  Receipt Date: 20080725
  Transmission Date: 20110219
  Serious: No
  Sender: FDA-Public Use
  Company Number: US-PFIZER INC-2008052564

PATIENT
  Sex: Male
  Weight: 84.09 kg

DRUGS (6)
  1. LYRICA [Suspect]
     Indication: DIABETIC NEUROPATHY
  2. CIPROFLOXACIN [Concomitant]
  3. ANTIDIARRHOEAL MICROORGANISMS [Concomitant]
  4. WELLBUTRIN [Concomitant]
  5. BENICAR [Concomitant]
  6. PRILOSEC [Concomitant]

REACTIONS (1)
  - WEIGHT INCREASED [None]
